FAERS Safety Report 19920061 (Version 2)
Quarter: 2021Q4

REPORT INFORMATION
  Report Type: Spontaneous
  Country: US (occurrence: US)
  Receive Date: 20211005
  Receipt Date: 20211022
  Transmission Date: 20220303
  Serious: Yes (Other)
  Sender: FDA-Public Use
  Company Number: US-009507513-2109USA006959

PATIENT
  Sex: Female

DRUGS (1)
  1. BRIDION [Suspect]
     Active Substance: SUGAMMADEX
     Dosage: 2 MILLIGRAM/KILOGRAM
     Route: 042
     Dates: start: 2020

REACTIONS (5)
  - Hypoxia [Unknown]
  - Pulmonary oedema [Unknown]
  - Bronchospasm [Unknown]
  - Polyuria [Unknown]
  - Product administration error [Unknown]

NARRATIVE: CASE EVENT DATE: 20200101
